FAERS Safety Report 8566047-9 (Version None)
Quarter: 2012Q3

REPORT INFORMATION
  Report Type: 
  Country: None (occurrence: None)
  Receive Date: 20120803
  Receipt Date: 20110810
  Transmission Date: 20120928
  Serious: No
  Sender: FDA-Public Use
  Company Number: US-ABBOTT-11P-163-0845662-00

PATIENT
  Sex: Female
  Weight: 98.518 kg

DRUGS (9)
  1. ZOCOR [Concomitant]
     Indication: BLOOD CHOLESTEROL INCREASED
  2. BYETTA [Concomitant]
     Indication: PRODUCT USED FOR UNKNOWN INDICATION
  3. NORCO [Concomitant]
     Indication: PRODUCT USED FOR UNKNOWN INDICATION
  4. LEXAPRO [Concomitant]
     Indication: PRODUCT USED FOR UNKNOWN INDICATION
  5. NIASPAN [Suspect]
     Indication: BLOOD CHOLESTEROL INCREASED
     Dates: start: 20080101
  6. XANAX [Concomitant]
     Indication: PRODUCT USED FOR UNKNOWN INDICATION
  7. NIASPAN [Suspect]
     Indication: BLOOD TRIGLYCERIDES INCREASED
  8. METFORMIN HYDROCHLORIDE [Concomitant]
     Indication: PRODUCT USED FOR UNKNOWN INDICATION
  9. ASPIRIN [Concomitant]
     Indication: PRODUCT USED FOR UNKNOWN INDICATION

REACTIONS (2)
  - PRURITUS [None]
  - FLUSHING [None]
